FAERS Safety Report 5940832-1 (Version None)
Quarter: 2008Q4

REPORT INFORMATION
  Report Type: 
  Country: None (occurrence: None)
  Receive Date: 20081104
  Receipt Date: 20081028
  Transmission Date: 20090506
  Serious: Yes (Hospitalization)
  Sender: FDA-Public Use
  Company Number: US-GILEAD-2008-0017713

PATIENT
  Sex: Male
  Weight: 59.474 kg

DRUGS (18)
  1. LETAIRIS [Suspect]
     Indication: PULMONARY HYPERTENSION
     Route: 048
     Dates: start: 20080723, end: 20080730
  2. LASIX [Concomitant]
     Route: 048
  3. ALTACE [Concomitant]
     Route: 048
  4. DIGOXIN [Concomitant]
     Route: 048
  5. COREG [Concomitant]
     Route: 048
  6. CLOPIDOGREL [Concomitant]
  7. AEROBID [Concomitant]
     Route: 055
  8. CITALOPRAM HYDROBROMIDE [Concomitant]
  9. OMEPRAZOLE [Concomitant]
  10. SIMVASTATIN [Concomitant]
  11. LIPITOR [Concomitant]
  12. OXCARBAZEPINE [Concomitant]
  13. FORADIL [Concomitant]
  14. DUONEB [Concomitant]
  15. SPIRIVA [Concomitant]
  16. OXYGEN [Concomitant]
  17. MUCINEX [Concomitant]
  18. XYZAL [Concomitant]

REACTIONS (2)
  - HEART RATE DECREASED [None]
  - HYPOTENSION [None]
